FAERS Safety Report 11348875 (Version 1)
Quarter: 2015Q3

REPORT INFORMATION
  Report Type: Report from Study
  Country: FR (occurrence: FR)
  Receive Date: 20150806
  Receipt Date: 20150806
  Transmission Date: 20151125
  Serious: Yes (Hospitalization)
  Sender: FDA-Public Use
  Company Number: FR-ROCHE-1617604

PATIENT
  Age: 59 Year
  Sex: Female
  Weight: 71 kg

DRUGS (3)
  1. BEVACIZUMAB [Suspect]
     Active Substance: BEVACIZUMAB
     Indication: NON-SMALL CELL LUNG CANCER
     Dosage: CYCLE 3; LAST DOSE ADMINISTERED ON 23/JUL/2015 (540 MG) (CUMULATIVE DOSE: 1650 MG)
     Route: 042
     Dates: start: 20150610
  2. CISPLATIN. [Suspect]
     Active Substance: CISPLATIN
     Indication: NON-SMALL CELL LUNG CANCER
     Dosage: LAST DOSE ADMINISTERED ON 23/JUL/2015 (132 MG) (CUMULATIVE DOSE: 400 MG)
     Route: 042
     Dates: start: 20150610
  3. PEMETREXED [Suspect]
     Active Substance: PEMETREXED
     Indication: NON-SMALL CELL LUNG CANCER
     Dosage: LAST DOSE ADMINISTERED ON 23/JUL/2015 (885 MG) (CUMULATIVE DOSE: 2675 MG),
     Route: 042
     Dates: start: 20150610

REACTIONS (1)
  - Acute kidney injury [Not Recovered/Not Resolved]

NARRATIVE: CASE EVENT DATE: 20150727
